FAERS Safety Report 26059027 (Version 1)
Quarter: 2025Q4

REPORT INFORMATION
  Report Type: Spontaneous
  Country: US (occurrence: US)
  Receive Date: 20251118
  Receipt Date: 20251118
  Transmission Date: 20260118
  Serious: No
  Sender: COLLEGIUM PHARMACEUTICAL
  Company Number: US-COLLEGIUM PHARMACEUTICAL, INC.-20241101404

PATIENT

DRUGS (5)
  1. BELBUCA [Suspect]
     Active Substance: BUPRENORPHINE HYDROCHLORIDE
     Indication: Pain management
     Dosage: 150 MICROGRAM, BID
     Route: 002
     Dates: start: 2023
  2. OXYCODONE [Concomitant]
     Active Substance: OXYCODONE
     Indication: Product used for unknown indication
     Dosage: 5 MILLIGRAM, QID
     Route: 048
  3. DICLOFENAC [Concomitant]
     Active Substance: DICLOFENAC
     Indication: Product used for unknown indication
     Dosage: 50 MILLIGRAM, QID
     Route: 065
  4. CYCLOBENZAPRINE [Concomitant]
     Active Substance: CYCLOBENZAPRINE
     Indication: Pain management
     Dosage: 10 MILLIGRAM, TID
     Route: 065
  5. LYRICA [Concomitant]
     Active Substance: PREGABALIN
     Indication: Fibromyalgia
     Dosage: UNK, UNKNOWN
     Route: 065

REACTIONS (3)
  - Product administration error [Unknown]
  - Product physical issue [Unknown]
  - Product adhesion issue [Unknown]

NARRATIVE: CASE EVENT DATE: 20240101
